FAERS Safety Report 24350547 (Version 6)
Quarter: 2025Q2

REPORT INFORMATION
  Report Type: Spontaneous
  Country: DE (occurrence: DE)
  Receive Date: 20240923
  Receipt Date: 20250505
  Transmission Date: 20250717
  Serious: Yes (Other)
  Sender: SANDOZ
  Company Number: DE-002147023-PHHY2019DE080320

PATIENT
  Sex: Female
  Weight: 65 kg

DRUGS (13)
  1. ANASTROZOLE [Suspect]
     Active Substance: ANASTROZOLE
     Indication: Hormone receptor positive HER2 negative breast cancer
     Dosage: 1 MG, QD
     Route: 048
     Dates: start: 20240524
  2. ANASTROZOLE [Suspect]
     Active Substance: ANASTROZOLE
     Indication: Breast cancer
     Dosage: START DATE: 08-MAY-2020, STOP DATE:25-OCT-2022, 1 MG, QD
     Route: 048
     Dates: end: 20221025
  3. EXEMESTANE [Suspect]
     Active Substance: EXEMESTANE
     Indication: Hormone receptor negative HER2 positive breast cancer
     Dosage: START DATE 26-OCT-2022 AND STOP DATE 04-JUN-2023,1 MG, QD (SCHEMA 21 DAYS INTAKE, 7  DAYS PAUSE)
     Route: 048
  4. LETROZOLE [Suspect]
     Active Substance: LETROZOLE
     Indication: Breast cancer metastatic
     Dosage: 2.5 MG, QD
     Route: 048
     Dates: start: 20190213, end: 20200507
  5. RIBOCICLIB [Suspect]
     Active Substance: RIBOCICLIB
     Dosage: 1200 MG, Q3W (1200 MG, TIW (400 MG  ADMINISTRATION SCHEME 21 DAYS INTAKE, 7  DAYS PAUSE))
     Route: 048
     Dates: start: 20230119, end: 20230511
  6. RIBOCICLIB [Suspect]
     Active Substance: RIBOCICLIB
     Dosage: 1200 MG, QW (400 MG, TIW (400 MG  ADMINISTRATION SCHEME 21 DAYS INTAKE, 7 DAYS PAUSE))
     Route: 048
     Dates: start: 20230119, end: 20230511
  7. RIBOCICLIB [Suspect]
     Active Substance: RIBOCICLIB
     Dosage: 200 MG, QD (SCHEMA 21 DAYS INTAKE, 7  DAYS PAUSE)
     Route: 048
     Dates: start: 20230512, end: 20230621
  8. RIBOCICLIB [Suspect]
     Active Substance: RIBOCICLIB
     Dosage: 200 MG, Q3W (200 MG, Q2W THEN 7 DAYS  PAUSED; 200 MG, TIW (200 MG, Q2W THEN  7 DAYS PAUSED))
     Route: 048
     Dates: start: 20240524
  9. RIBOCICLIB [Suspect]
     Active Substance: RIBOCICLIB
     Dosage: 400 MG, Q3W 7 DAYS PAUSED
     Route: 048
     Dates: start: 20190327, end: 20190408
  10. RIBOCICLIB [Suspect]
     Active Substance: RIBOCICLIB
     Dosage: 400 MG, QD (SCHEMA 21 DAYS INTAKE, 7  DAYS PAUSE)
     Route: 048
     Dates: start: 20230119, end: 20230511
  11. RIBOCICLIB [Suspect]
     Active Substance: RIBOCICLIB
     Dosage: 400 MG, Q3W THEN 7 DAYS PAUSED
     Route: 048
     Dates: start: 20190425, end: 20190522
  12. RIBOCICLIB [Suspect]
     Active Substance: RIBOCICLIB
     Dosage: 400 MG, Q3W THEN 7 DAYS PAUSED
     Route: 048
     Dates: start: 20190831, end: 20221123
  13. RIBOCICLIB [Suspect]
     Active Substance: RIBOCICLIB
     Indication: Breast cancer metastatic
     Dosage: 600 MG, Q3W, THEN 7 DAYS PAUSED; 600 MG (DAILY DOSE (DD)) (SCHEMA 21 DAYS INTAKE, 7 DAYS PAUSE)
     Route: 048
     Dates: start: 20190213, end: 20190312

REACTIONS (17)
  - Neutropenia [Recovered/Resolved]
  - Pneumonitis [Recovered/Resolved]
  - Leukopenia [Recovered/Resolved]
  - Leukopenia [Recovered/Resolved]
  - Leukopenia [Recovered/Resolved]
  - Neutropenia [Recovered/Resolved]
  - Musculoskeletal discomfort [Not Recovered/Not Resolved]
  - Sleep disorder [Recovered/Resolved]
  - Oropharyngeal pain [Recovered/Resolved]
  - Pain in extremity [Not Recovered/Not Resolved]
  - Sleep disorder [Unknown]
  - Cough [Recovered/Resolved]
  - Nausea [Recovered/Resolved]
  - Hot flush [Recovered/Resolved]
  - Fatigue [Not Recovered/Not Resolved]
  - Bone pain [Recovered/Resolved]
  - Hot flush [Recovering/Resolving]

NARRATIVE: CASE EVENT DATE: 20190313
